FAERS Safety Report 8469810-8 (Version None)
Quarter: 2012Q2

REPORT INFORMATION
  Report Type: 
  Country: None (occurrence: None)
  Receive Date: 20120626
  Receipt Date: 20120618
  Transmission Date: 20120825
  Serious: Yes (Hospitalization, Disabling, Other)
  Sender: FDA-Public Use
  Company Number: US-MERCK-1101USA01550

PATIENT
  Age: 55 Year
  Sex: Male
  Weight: 93 kg

DRUGS (5)
  1. ACTONEL [Suspect]
     Indication: OSTEOPOROSIS
     Route: 065
  2. FOSAMAX [Suspect]
     Route: 048
     Dates: start: 20050505
  3. ZOCOR [Concomitant]
     Indication: HYPERCHOLESTEROLAEMIA
     Route: 048
     Dates: start: 19940101
  4. ALENDRONATE SODIUM [Suspect]
     Indication: OSTEOPOROSIS
     Route: 048
     Dates: start: 20080101, end: 20101002
  5. FOSAMAX [Suspect]
     Indication: OSTEOPOROSIS
     Route: 048
     Dates: start: 20021001, end: 20080101

REACTIONS (92)
  - OSTEONECROSIS OF JAW [None]
  - STAPHYLOCOCCAL INFECTION [None]
  - SUICIDAL IDEATION [None]
  - ALCOHOL DETOXIFICATION [None]
  - ROAD TRAFFIC ACCIDENT [None]
  - HYPOPARATHYROIDISM SECONDARY [None]
  - HYPONATRAEMIA [None]
  - DENTAL CARIES [None]
  - PATELLOFEMORAL PAIN SYNDROME [None]
  - CARDIAC FAILURE CONGESTIVE [None]
  - RIB FRACTURE [None]
  - TIBIA FRACTURE [None]
  - RESPIRATORY DISTRESS [None]
  - HYPERTENSION [None]
  - HEPATITIS VIRAL [None]
  - IMPAIRED HEALING [None]
  - PERIODONTAL DISEASE [None]
  - CALCIUM DEFICIENCY [None]
  - THERMAL BURN [None]
  - LIGAMENT SPRAIN [None]
  - BRADYCARDIA [None]
  - MENTAL STATUS CHANGES [None]
  - HYPOXIA [None]
  - SELF INJURIOUS BEHAVIOUR [None]
  - PNEUMONIA [None]
  - HEAD INJURY [None]
  - PERONEAL NERVE PALSY [None]
  - VOMITING [None]
  - SINUS DISORDER [None]
  - ORAL INFECTION [None]
  - CONTUSION [None]
  - SPINAL COMPRESSION FRACTURE [None]
  - ADVERSE DRUG REACTION [None]
  - PNEUMONIA PRIMARY ATYPICAL [None]
  - PYREXIA [None]
  - LOOSE TOOTH [None]
  - HYPERAMMONAEMIA [None]
  - PLEURAL EFFUSION [None]
  - CHRONIC OBSTRUCTIVE PULMONARY DISEASE [None]
  - ANAEMIA [None]
  - ABSCESS DRAINAGE [None]
  - HYPERPARATHYROIDISM [None]
  - VITAMIN D DEFICIENCY [None]
  - TOOTH FRACTURE [None]
  - THROMBOCYTOPENIA [None]
  - TOOTH ABSCESS [None]
  - MENISCUS LESION [None]
  - ASTHMA [None]
  - BACK PAIN [None]
  - ACTINIC KERATOSIS [None]
  - BACK INJURY [None]
  - EXCORIATION [None]
  - ACCIDENTAL OVERDOSE [None]
  - DYSLIPIDAEMIA [None]
  - OVERDOSE [None]
  - DRUG DEPENDENCE [None]
  - SPINAL FRACTURE [None]
  - PANCREATITIS [None]
  - CEREBRAL DISORDER [None]
  - HYPERLIPIDAEMIA [None]
  - LUMBAR RADICULOPATHY [None]
  - DEHYDRATION [None]
  - ALCOHOL POISONING [None]
  - FEMUR FRACTURE [None]
  - FIBULA FRACTURE [None]
  - HYPOGONADISM [None]
  - WHEEZING [None]
  - SUBDURAL HYGROMA [None]
  - UPPER-AIRWAY COUGH SYNDROME [None]
  - LACERATION [None]
  - ARTHROPATHY [None]
  - JOINT DISLOCATION [None]
  - EXOSTOSIS [None]
  - DEPRESSION [None]
  - COUGH [None]
  - BRONCHITIS CHRONIC [None]
  - BONE LOSS [None]
  - CHEST PAIN [None]
  - CONVULSION [None]
  - FAMILY STRESS [None]
  - RESPIRATORY ARREST [None]
  - BRONCHIAL HYPERREACTIVITY [None]
  - CONFUSIONAL STATE [None]
  - HALLUCINATION [None]
  - CERVICAL VERTEBRAL FRACTURE [None]
  - FALL [None]
  - OSTEOARTHRITIS [None]
  - BLOOD LACTIC ACID INCREASED [None]
  - WRONG DRUG ADMINISTERED [None]
  - BLOOD TESTOSTERONE DECREASED [None]
  - HYPOKALAEMIA [None]
  - RHINITIS [None]
